FAERS Safety Report 15438765 (Version 1)
Quarter: 2018Q3

REPORT INFORMATION
  Report Type: Spontaneous
  Country: ES (occurrence: ES)
  Receive Date: 20180928
  Receipt Date: 20180928
  Transmission Date: 20181010
  Serious: Yes (Hospitalization)
  Sender: FDA-Public Use
  Company Number: ES-TEVA-2018-ES-959431

PATIENT
  Age: 79 Year
  Sex: Male

DRUGS (10)
  1. PLAVIX 75 MG COMPRIMIDOS RECUBIERTOS CON PELICULA, 28 COMPRIMIDOS [Concomitant]
     Dosage: 75 MILLIGRAM DAILY;
     Route: 048
  2. CARDYL 20 MG COMPRIMIDOS RECUBIERTOS CON PELICULA, 28 COMPRIMIDOS [Concomitant]
     Dosage: 20 MILLIGRAM DAILY;
     Route: 048
  3. LYRICA 75 MG CAPSULAS DURAS, 56 C?PSULAS [Concomitant]
     Dosage: 150 MILLIGRAM DAILY;
     Route: 048
  4. FUROSEMIDA (1615A) [Concomitant]
     Active Substance: FUROSEMIDE
     Dosage: 20 MILLIGRAM DAILY;
     Route: 048
  5. ZYLORIC 100 MG COMPRIMIDOS, 25 COMPRIMIDOS [Concomitant]
     Dosage: 100 MILLIGRAM DAILY;
     Route: 048
  6. TRAJENTA 5 MG COMPRIMIDOS RECUBIERTOS CON PELICULA, 30 COMPRIMIDOS [Concomitant]
     Dosage: 5 MILLIGRAM DAILY;
     Route: 048
  7. ROCALTROL 0,25 MCG CAPSULAS BLANDAS , 20 C?PSULAS [Concomitant]
     Route: 048
  8. LOSARTAN (7157A) [Suspect]
     Active Substance: LOSARTAN
     Indication: HYPERTENSION
     Dosage: 100 MILLIGRAM DAILY;
     Route: 048
     Dates: start: 201702, end: 20180323
  9. CLEXANE 4.000 UI (40 MG)/ 0,4 ML  SOLUCION INYECTABLE EN JERINGA PRECA [Concomitant]
     Dosage: 40 MILLIGRAM DAILY;
     Route: 058
  10. CARDURAN NEO 4 MG COMPRIMIDOS DE LIBERACION MODIFICADA , 28 COMPRIMIDO [Concomitant]
     Dosage: 8 MILLIGRAM DAILY;
     Route: 048

REACTIONS (1)
  - Acute kidney injury [Recovered/Resolved]

NARRATIVE: CASE EVENT DATE: 20180323
